FAERS Safety Report 4406995-4 (Version None)
Quarter: 2004Q2

REPORT INFORMATION
  Report Type: 
  Country: None (occurrence: None)
  Receive Date: 20040618
  Receipt Date: 20040421
  Transmission Date: 20050107
  Serious: No
  Sender: FDA-Public Use
  Company Number: US-JNJFOC-20040405252

PATIENT

DRUGS (1)
  1. ORTHO EVRA [Suspect]
     Indication: DRUG EXPOSURE VIA BREAST MILK
     Dosage: TRANSMAMMARY
     Route: 063

REACTIONS (1)
  - IRRITABILITY [None]
